FAERS Safety Report 7411202-4 (Version None)
Quarter: 2011Q2

REPORT INFORMATION
  Report Type: 
  Country: None (occurrence: None)
  Receive Date: 20110413
  Receipt Date: 20110331
  Transmission Date: 20111010
  Serious: Yes (Other)
  Sender: FDA-Public Use
  Company Number: US-RB-025025-11

PATIENT
  Sex: Male

DRUGS (2)
  1. METHADONE [Suspect]
     Indication: DRUG DEPENDENCE
     Dosage: DOSAGE INFORMATION UNKNOWN
     Route: 064
     Dates: start: 20100501, end: 20101121
  2. SUBOXONE [Suspect]
     Indication: DRUG DEPENDENCE
     Route: 064
     Dates: end: 20100501

REACTIONS (2)
  - DRUG EXPOSURE DURING PREGNANCY [None]
  - PREMATURE BABY [None]
